FAERS Safety Report 10522049 (Version 1)
Quarter: 2014Q4

REPORT INFORMATION
  Report Type: Spontaneous
  Country: US (occurrence: US)
  Receive Date: 20141016
  Receipt Date: 20141016
  Transmission Date: 20150528
  Serious: No
  Sender: FDA-Public Use
  Company Number: US-ASTRAZENECA-2014SE69900

PATIENT
  Age: 81 Year
  Sex: Female
  Weight: 74.8 kg

DRUGS (1)
  1. PULMICORT FLEXHALER [Suspect]
     Active Substance: BUDESONIDE
     Indication: ASTHMA
     Dosage: 180 MCG, 2 PUFFS DAILY
     Route: 055
     Dates: start: 20140915

REACTIONS (2)
  - Intentional product misuse [Unknown]
  - Secretion discharge [Unknown]

NARRATIVE: CASE EVENT DATE: 20140915
